FAERS Safety Report 7689818-X (Version None)
Quarter: 2011Q3

REPORT INFORMATION
  Report Type: 
  Country: None (occurrence: None)
  Receive Date: 20110818
  Receipt Date: 20110809
  Transmission Date: 20111222
  Serious: Yes (Hospitalization)
  Sender: FDA-Public Use
  Company Number: US-BIOGENIDEC-2011BI023744

PATIENT
  Age: 57 Year
  Sex: Male

DRUGS (2)
  1. AVONEX [Concomitant]
     Indication: MULTIPLE SCLEROSIS
     Route: 030
     Dates: start: 19961001
  2. TYSABRI [Suspect]
     Indication: MULTIPLE SCLEROSIS
     Route: 042
     Dates: start: 20101011

REACTIONS (6)
  - FALL [None]
  - LOSS OF CONTROL OF LEGS [None]
  - GENERAL SYMPTOM [None]
  - GAIT DISTURBANCE [None]
  - VASCULAR ACCESS COMPLICATION [None]
  - ANKLE FRACTURE [None]
